FAERS Safety Report 4303671-3 (Version None)
Quarter: 2004Q1

REPORT INFORMATION
  Report Type: 
  Country: None (occurrence: None)
  Receive Date: 20040225
  Receipt Date: 20031111
  Transmission Date: 20041129
  Serious: Yes (Life-Threatening, Hospitalization)
  Sender: FDA-Public Use
  Company Number: JP-BRISTOL-MYERS SQUIBB COMPANY-12434049

PATIENT
  Age: 56 Year
  Sex: Male

DRUGS (4)
  1. TAXOL [Suspect]
     Indication: NON-SMALL CELL LUNG CANCER
     Dosage: 1ST DOSE - 24-SEP-2003
     Route: 042
     Dates: start: 20031020, end: 20031020
  2. AQUPLA [Suspect]
     Indication: NON-SMALL CELL LUNG CANCER
     Dosage: 1ST DOSE ON 24-SEP-2003
     Route: 042
     Dates: start: 20031020, end: 20031020
  3. MORPHINE [Suspect]
     Route: 042
  4. MS CONTIN [Concomitant]
     Dosage: DOSING FROM 20 TO 240 MG
     Route: 048
     Dates: start: 20030819, end: 20031102

REACTIONS (2)
  - DEPRESSED LEVEL OF CONSCIOUSNESS [None]
  - HYPERCALCAEMIA [None]
